FAERS Safety Report 6502441-5 (Version None)
Quarter: 2009Q4

REPORT INFORMATION
  Report Type: 
  Country: None (occurrence: None)
  Receive Date: 20091203
  Receipt Date: 20091117
  Transmission Date: 20100525
  Serious: Yes (Other)
  Sender: FDA-Public Use
  Company Number: B0608269A

PATIENT
  Age: 32 Year
  Sex: Female

DRUGS (4)
  1. PROPRANOLOL HYDROCHLORIDE (FORMULATION UNKNOWN) (GENERIC) (PROPRANOLOL [Suspect]
     Indication: MITRAL VALVE STENOSIS
  2. BETA-BLOCKER (FORMULATION UNKNOWN) (BETA-BLOCKER) [Suspect]
     Indication: MITRAL VALVE STENOSIS
  3. DIURETIC (FORMULATION UNKNOWN) (DIURETIC) [Suspect]
     Indication: MITRAL VALVE STENOSIS
  4. ANALGESIC (FORMULATION UNKNOWN) (ANALGESIC) [Suspect]

REACTIONS (4)
  - BREECH PRESENTATION [None]
  - DRUG EXPOSURE DURING PREGNANCY [None]
  - PREMATURE LABOUR [None]
  - PREMATURE RUPTURE OF MEMBRANES [None]
